FAERS Safety Report 5000653-3 (Version None)
Quarter: 2006Q2

REPORT INFORMATION
  Report Type: 
  Country: None (occurrence: None)
  Receive Date: 20060512
  Receipt Date: 20060504
  Transmission Date: 20061013
  Serious: Yes (Other)
  Sender: FDA-Public Use
  Company Number: US-JNJFOC-20060501250

PATIENT
  Sex: Female

DRUGS (22)
  1. REMICADE [Suspect]
     Indication: RHEUMATOID ARTHRITIS
     Route: 042
  2. CELEBREX [Concomitant]
  3. METHOTREXATE [Concomitant]
  4. MULTI-VITAMIN [Concomitant]
  5. MULTI-VITAMIN [Concomitant]
  6. MULTI-VITAMIN [Concomitant]
  7. MULTI-VITAMIN [Concomitant]
  8. MULTI-VITAMIN [Concomitant]
  9. MULTI-VITAMIN [Concomitant]
  10. MULTI-VITAMIN [Concomitant]
  11. MULTI-VITAMIN [Concomitant]
  12. PREMPRO [Concomitant]
  13. PREMPRO [Concomitant]
  14. PREVACID [Concomitant]
  15. SKELAXIN [Concomitant]
  16. TIMOPTIC [Concomitant]
  17. TYLENOL (CAPLET) [Concomitant]
     Dosage: AS NEEDED
  18. VITAMIN E [Concomitant]
  19. CLARINEX [Concomitant]
  20. ZELNORM [Concomitant]
  21. CALCIUM+D [Concomitant]
  22. CALCIUM+D [Concomitant]

REACTIONS (1)
  - BREAST CANCER [None]
